FAERS Safety Report 9212750 (Version 1)
Quarter: 2013Q2

REPORT INFORMATION
  Report Type: Report from Study
  Country: US (occurrence: US)
  Receive Date: 20130405
  Receipt Date: 20130405
  Transmission Date: 20140414
  Serious: Yes (Hospitalization, Disabling)
  Sender: FDA-Public Use
  Company Number: US-009507513-1209USA007766

PATIENT
  Age: 29 Year
  Sex: Female
  Weight: 51.7 kg

DRUGS (1)
  1. IMPLANON [Suspect]
     Indication: CONTRACEPTION
     Dosage: UNK
     Route: 059
     Dates: start: 20120630, end: 20120917

REACTIONS (3)
  - Mood altered [Recovered/Resolved]
  - Menstruation irregular [Unknown]
  - Device difficult to use [Unknown]
